FAERS Safety Report 21804929 (Version 1)
Quarter: 2023Q1

REPORT INFORMATION
  Report Type: Report from Study
  Country: US (occurrence: US)
  Receive Date: 20230102
  Receipt Date: 20230102
  Transmission Date: 20230417
  Serious: No
  Sender: FDA-Public Use
  Company Number: US-ABBVIE-4205989

PATIENT

DRUGS (1)
  1. SKYRIZI [Suspect]
     Active Substance: RISANKIZUMAB-RZAA
     Indication: Psoriatic arthropathy
     Route: 058

REACTIONS (6)
  - Drug ineffective [Unknown]
  - Hand fracture [Unknown]
  - Rotator cuff syndrome [Unknown]
  - Foot fracture [Unknown]
  - Rib fracture [Unknown]
  - Fall [Unknown]
